FAERS Safety Report 16358853 (Version 1)
Quarter: 2019Q2

REPORT INFORMATION
  Report Type: Spontaneous
  Country: UA (occurrence: UA)
  Receive Date: 20190527
  Receipt Date: 20190527
  Transmission Date: 20190711
  Serious: Yes (Other)
  Sender: FDA-Public Use
  Company Number: PHHY2019UA120742

PATIENT
  Age: 40 Year
  Sex: Female

DRUGS (1)
  1. SIMBRINZA [Suspect]
     Active Substance: BRIMONIDINE TARTRATE\BRINZOLAMIDE
     Indication: PREOPERATIVE CARE
     Dosage: 10/2 MG,UKN
     Route: 057
     Dates: start: 20190506, end: 20190522

REACTIONS (1)
  - Eye haemorrhage [Unknown]
